FAERS Safety Report 12238416 (Version 1)
Quarter: 2016Q2

REPORT INFORMATION
  Report Type: Spontaneous
  Country: JP (occurrence: JP)
  Receive Date: 20160405
  Receipt Date: 20160405
  Transmission Date: 20160815
  Serious: Yes (Other)
  Sender: FDA-Public Use
  Company Number: JP-PFIZER INC-2016185366

PATIENT
  Age: 6 Decade
  Sex: Male

DRUGS (2)
  1. CAMPTO [Suspect]
     Active Substance: IRINOTECAN
     Indication: OESOPHAGEAL CARCINOMA
     Dosage: UNK, 1X/DAY
     Route: 041
  2. CISPLATIN. [Concomitant]
     Active Substance: CISPLATIN
     Dosage: UNK

REACTIONS (1)
  - Tumour lysis syndrome [Recovered/Resolved]
